FAERS Safety Report 18270603 (Version 2)
Quarter: 2020Q4

REPORT INFORMATION
  Report Type: Spontaneous
  Country: JP (occurrence: JP)
  Receive Date: 20200915
  Receipt Date: 20201005
  Transmission Date: 20210113
  Serious: Yes (Death)
  Sender: FDA-Public Use
  Company Number: JP-JNJFOC-A-CH2020-207068

PATIENT
  Age: 89 Year
  Sex: Female

DRUGS (8)
  1. THYRADIN S [Concomitant]
     Active Substance: LEVOTHYROXINE SODIUM
     Dates: start: 201707
  2. WARFARIN [Concomitant]
     Active Substance: WARFARIN
     Route: 048
     Dates: start: 200603
  3. ALDACTONE A [Concomitant]
     Active Substance: SPIRONOLACTONE
     Dates: start: 20060612
  4. OXYGEN. [Concomitant]
     Active Substance: OXYGEN
  5. BERASUS [Concomitant]
     Active Substance: BERAPROST SODIUM
     Indication: PRODUCT USED FOR UNKNOWN INDICATION
     Dosage: DOSE UNKNOWN
     Route: 048
     Dates: start: 200612
  6. TAKECAB [Concomitant]
     Active Substance: VONOPRAZAN FUMARATE
     Route: 055
  7. LASIX [Concomitant]
     Active Substance: FUROSEMIDE
     Dates: start: 200612
  8. OPSUMIT [Suspect]
     Active Substance: MACITENTAN
     Indication: PULMONARY HYPERTENSION
     Dosage: UNK
     Route: 048
     Dates: start: 20170914, end: 20200326

REACTIONS (1)
  - Pneumonia [Fatal]
